FAERS Safety Report 9734860 (Version 1)
Quarter: 2013Q4

REPORT INFORMATION
  Report Type: Spontaneous
  Country: CA (occurrence: CA)
  Receive Date: 20131206
  Receipt Date: 20131206
  Transmission Date: 20140711
  Serious: Yes (Other)
  Sender: FDA-Public Use
  Company Number: CA-JNJFOC-20131117947

PATIENT
  Sex: Female
  Weight: 68.95 kg

DRUGS (4)
  1. INVEGA SUSTENNA [Suspect]
     Indication: SCHIZOPHRENIA
     Route: 030
     Dates: start: 20131025, end: 2013
  2. INVEGA SUSTENNA [Suspect]
     Indication: SCHIZOPHRENIA
     Route: 030
     Dates: start: 2013, end: 201310
  3. TOPIRAMATE [Concomitant]
     Indication: CONVULSION
     Route: 048
  4. TOPIRAMATE [Concomitant]
     Indication: EPILEPSY
     Route: 048

REACTIONS (5)
  - Tardive dyskinesia [Not Recovered/Not Resolved]
  - Choking [Not Recovered/Not Resolved]
  - Restlessness [Not Recovered/Not Resolved]
  - Arthralgia [Not Recovered/Not Resolved]
  - Body temperature increased [Not Recovered/Not Resolved]
